FAERS Safety Report 7622770-1 (Version None)
Quarter: 2011Q3

REPORT INFORMATION
  Report Type: 
  Country: None (occurrence: None)
  Receive Date: 20110712
  Receipt Date: 20110627
  Transmission Date: 20111222
  Serious: Yes (Life-Threatening)
  Sender: FDA-Public Use
  Company Number: US-2011-10323

PATIENT
  Age: 63 Year
  Sex: Female

DRUGS (3)
  1. FLUDARABINE PHOSPHATE [Concomitant]
  2. ALEVIATIN [Concomitant]
  3. BUSULFAN [Suspect]
     Indication: STEM CELL TRANSPLANT
     Dosage: 0.8 MC/KG, DAILY DOSE, INTRAVENOUS
     Route: 042
     Dates: start: 20110506, end: 20110509

REACTIONS (3)
  - CONVULSION [None]
  - HYPONATRAEMIA [None]
  - LOSS OF CONSCIOUSNESS [None]
